FAERS Safety Report 24441043 (Version 2)
Quarter: 2025Q3

REPORT INFORMATION
  Report Type: Report from Study
  Country: ZA (occurrence: ZA)
  Receive Date: 20241016
  Receipt Date: 20250803
  Transmission Date: 20251020
  Serious: Yes (Hospitalization)
  Sender: ALEXION PHARMACEUTICALS
  Company Number: ZA-AstraZeneca-CH-00721763A

PATIENT
  Age: 74 Year
  Sex: Male

DRUGS (9)
  1. BUDESONIDE\FORMOTEROL [Suspect]
     Active Substance: BUDESONIDE\FORMOTEROL
     Indication: Asthma
  2. LANSOPRAZOLE [Concomitant]
     Active Substance: LANSOPRAZOLE
     Indication: Ulcer
  3. Sinucon [Concomitant]
  4. GLYCERIN ADULT [Concomitant]
     Active Substance: GLYCERIN
  5. Lipogen [Concomitant]
  6. PREDATOR [Concomitant]
     Active Substance: LIDOCAINE HYDROCHLORIDE
  7. ECOTRIN [Concomitant]
     Active Substance: ASPIRIN
  8. Uromax [Concomitant]
     Indication: Prostatomegaly
  9. Coryx [Concomitant]

REACTIONS (1)
  - Venous occlusion [Unknown]
